FAERS Safety Report 24042891 (Version 6)
Quarter: 2025Q1

REPORT INFORMATION
  Report Type: Spontaneous
  Country: US (occurrence: US)
  Receive Date: 20240702
  Receipt Date: 20250129
  Transmission Date: 20250409
  Serious: Yes (Other)
  Sender: PFIZER
  Company Number: US-PFIZER INC-PV202400085538

PATIENT
  Age: 68 Year
  Sex: Female

DRUGS (2)
  1. INLYTA [Suspect]
     Active Substance: AXITINIB
     Indication: Renal cancer
     Dates: start: 202406
  2. INLYTA [Suspect]
     Active Substance: AXITINIB
     Dosage: 3 TABLETS (3 MG) 2 TIMES DAILY
     Route: 048
     Dates: start: 20250101

REACTIONS (3)
  - Spinal fracture [Unknown]
  - Kidney infection [Unknown]
  - Urinary tract infection [Unknown]
